FAERS Safety Report 5525572-5 (Version None)
Quarter: 2007Q4

REPORT INFORMATION
  Report Type: 
  Country: None (occurrence: None)
  Receive Date: 20071126
  Receipt Date: 20071120
  Transmission Date: 20080405
  Serious: Yes (Other)
  Sender: FDA-Public Use
  Company Number: B0496183A

PATIENT
  Age: 70 Year
  Sex: Female

DRUGS (8)
  1. SEREVENT [Suspect]
     Indication: DRUG USE FOR UNKNOWN INDICATION
     Dosage: 50MCG TWICE PER DAY
     Route: 055
     Dates: start: 20070712, end: 20071114
  2. QVAR 40 [Concomitant]
     Route: 055
  3. EBRANTIL [Concomitant]
     Route: 048
  4. MEIACT [Concomitant]
     Route: 048
  5. CHINESE MEDICINE [Concomitant]
     Route: 048
  6. PRONON [Concomitant]
     Route: 048
  7. OLMETEC [Concomitant]
     Route: 048
  8. HERBESSER R [Concomitant]
     Route: 048

REACTIONS (2)
  - CYSTITIS-LIKE SYMPTOM [None]
  - DYSURIA [None]
